FAERS Safety Report 7285511-6 (Version None)
Quarter: 2011Q1

REPORT INFORMATION
  Report Type: 
  Country: None (occurrence: None)
  Receive Date: 20110210
  Receipt Date: 20110201
  Transmission Date: 20110831
  Serious: Yes (Hospitalization)
  Sender: FDA-Public Use
  Company Number: IT-ASTRAZENECA-2011SE04939

PATIENT
  Age: 25091 Day
  Sex: Male

DRUGS (5)
  1. TORVAST [Concomitant]
  2. ASPIRIN [Concomitant]
  3. ATENOLOL [Suspect]
     Indication: HYPERTENSION
     Route: 048
     Dates: start: 20100923, end: 20100926
  4. TAREG [Concomitant]
  5. NORVASC [Concomitant]

REACTIONS (4)
  - DROP ATTACKS [None]
  - BLOOD PRESSURE DIASTOLIC DECREASED [None]
  - SINUS BRADYCARDIA [None]
  - SYNCOPE [None]
